FAERS Safety Report 9068291 (Version 1)
Quarter: 2013Q1

REPORT INFORMATION
  Report Type: Spontaneous
  Country: US (occurrence: US)
  Receive Date: 20130206
  Receipt Date: 20130206
  Transmission Date: 20140127
  Serious: Yes (Death, Other)
  Sender: FDA-Public Use
  Company Number: US-PFIZER INC-2003018942

PATIENT
  Age: 44 Year
  Sex: Female
  Weight: 62 kg

DRUGS (11)
  1. VFEND [Suspect]
     Indication: COCCIDIOIDOMYCOSIS
     Dosage: 400 MG, 2X/DAY
     Route: 048
  2. TACROLIMUS [Interacting]
     Dosage: 0.5 MG, 1X/DAY
     Route: 048
  3. TRIMETOPRIM-SULFA [Concomitant]
     Dosage: 5 MG/KG, 2X/DAY
     Route: 042
  4. MYCOPHENOLATE MOFETIL [Concomitant]
     Route: 065
  5. LANSOPRAZOLE [Concomitant]
     Route: 065
  6. PROMETHAZINE HCL [Concomitant]
     Route: 065
  7. SPIRONOLACTONE [Concomitant]
     Route: 065
  8. PREDNISONE [Concomitant]
     Route: 065
  9. ALLOPURINOL [Concomitant]
     Route: 065
  10. CITALOPRAM [Concomitant]
     Route: 065
  11. FUROSEMIDE [Concomitant]
     Route: 065

REACTIONS (5)
  - Drug interaction [Unknown]
  - Acute respiratory distress syndrome [Fatal]
  - Pulmonary oedema [Fatal]
  - Hepatorenal syndrome [Fatal]
  - Immunosuppressant drug level increased [Unknown]
